FAERS Safety Report 9409783 (Version 2)
Quarter: 2013Q3

REPORT INFORMATION
  Report Type: Spontaneous
  Country: US (occurrence: US)
  Receive Date: 20130719
  Receipt Date: 20130819
  Transmission Date: 20140515
  Serious: Yes (Other)
  Sender: FDA-Public Use
  Company Number: US-ASTELLAS-2013US007468

PATIENT
  Age: 79 Year
  Sex: Female
  Weight: 79 kg

DRUGS (12)
  1. VESICARE [Suspect]
     Indication: PRODUCT USED FOR UNKNOWN INDICATION
     Dosage: 10 MG, UID/QD
     Route: 048
  2. OXYCODONE [Concomitant]
     Indication: PAIN
     Dosage: 325 MG, BID
     Route: 048
  3. LYRICA [Concomitant]
     Indication: FIBROMYALGIA
     Dosage: UNK MG, BID
     Route: 048
  4. PROZAC [Concomitant]
     Indication: DEPRESSION
     Dosage: UNK MG, UID/QD
     Route: 048
  5. PREGABALIN [Concomitant]
     Indication: FIBROMYALGIA
     Dosage: 300 MG, TID
     Route: 048
  6. CLONAZEPAM [Concomitant]
     Indication: FIBROMYALGIA
     Dosage: 0.5 MG, TID
     Route: 048
  7. FLUOXETIN [Concomitant]
     Indication: DEPRESSION
     Dosage: 20 MG, UID/QD
     Route: 048
  8. LISINOPRIL [Concomitant]
     Indication: BLOOD PRESSURE
     Dosage: 5 MG, UID/QD
     Route: 048
  9. CELECOXIB [Concomitant]
     Indication: FIBROMYALGIA
     Dosage: 100 MG, UID/QD
     Route: 048
  10. SPIRIVA [Concomitant]
     Indication: DYSPNOEA
     Dosage: 1 PUFF DAILY
     Route: 045
  11. PROAIR HFA [Concomitant]
     Indication: DYSPNOEA
     Dosage: 200 DF, UID/QD
     Route: 045
  12. ASPIRIN [Concomitant]
     Indication: PRODUCT USED FOR UNKNOWN INDICATION
     Dosage: 81 MG, UID/QD
     Route: 048

REACTIONS (1)
  - Breast cancer [Unknown]
